FAERS Safety Report 8299937-5 (Version None)
Quarter: 2012Q2

REPORT INFORMATION
  Report Type: 
  Country: None (occurrence: None)
  Receive Date: 20120420
  Receipt Date: 20120412
  Transmission Date: 20120825
  Serious: No
  Sender: FDA-Public Use
  Company Number: US-BIOGENIDEC-2012BI008775

PATIENT
  Age: 28 Year
  Sex: Female

DRUGS (3)
  1. AVONEX [Concomitant]
     Indication: MULTIPLE SCLEROSIS
     Route: 030
  2. TYSABRI [Suspect]
     Indication: MULTIPLE SCLEROSIS
     Route: 042
     Dates: start: 20061218
  3. AVONEX [Concomitant]
     Route: 030
     Dates: start: 20030305

REACTIONS (3)
  - LIVER FUNCTION TEST ABNORMAL [None]
  - FALL [None]
  - FRACTURED COCCYX [None]
